FAERS Safety Report 18174721 (Version 9)
Quarter: 2025Q3

REPORT INFORMATION
  Report Type: Spontaneous
  Country: US (occurrence: US)
  Receive Date: 20200820
  Receipt Date: 20250703
  Transmission Date: 20251020
  Serious: Yes (Other)
  Sender: PFIZER
  Company Number: US-PFIZER INC-2020321248

PATIENT
  Age: 70 Year
  Sex: Female

DRUGS (2)
  1. IBRANCE [Suspect]
     Active Substance: PALBOCICLIB
     Indication: Breast cancer female
     Route: 048
  2. IBRANCE [Suspect]
     Active Substance: PALBOCICLIB
     Route: 048
     Dates: start: 20220210

REACTIONS (11)
  - Breast cancer female [Unknown]
  - Malignant neoplasm progression [Unknown]
  - Metastases to lung [Unknown]
  - Metastases to bone [Unknown]
  - Feeling abnormal [Unknown]
  - Immune system disorder [Unknown]
  - Platelet count decreased [Unknown]
  - Stomatitis [Unknown]
  - Herpes simplex [Unknown]
  - Anaemia [Unknown]
  - Fatigue [Unknown]
